FAERS Safety Report 20638891 (Version 2)
Quarter: 2022Q2

REPORT INFORMATION
  Report Type: Spontaneous
  Country: CO (occurrence: CO)
  Receive Date: 20220325
  Receipt Date: 20220413
  Transmission Date: 20220721
  Serious: Yes (Hospitalization, Other)
  Sender: FDA-Public Use
  Company Number: CO-SA-SAC20220316000299

PATIENT
  Age: 3 Year
  Sex: Male

DRUGS (2)
  1. LARONIDASE [Suspect]
     Active Substance: LARONIDASE
     Indication: Mucopolysaccharidosis I
     Dosage: 3 VIALS (8.75 MG)
     Route: 042
     Dates: start: 20210915
  2. LARONIDASE [Suspect]
     Active Substance: LARONIDASE
     Dosage: 3 VIALS (8.75 MG)
     Route: 042

REACTIONS (6)
  - Hydrocephalus [Unknown]
  - Ear infection [Unknown]
  - Disorientation [Unknown]
  - Social avoidant behaviour [Unknown]
  - Somnolence [Unknown]
  - Product use issue [Unknown]

NARRATIVE: CASE EVENT DATE: 20220312
